FAERS Safety Report 9952561 (Version 1)
Quarter: 2014Q1

REPORT INFORMATION
  Report Type: Report from Study
  Country: US (occurrence: US)
  Receive Date: 20140304
  Receipt Date: 20140304
  Transmission Date: 20141002
  Serious: No
  Sender: FDA-Public Use
  Company Number: US-ABBVIE-13P-163-1076122-00

PATIENT
  Age: 36 Year
  Sex: Female
  Weight: 108.96 kg

DRUGS (3)
  1. HUMIRA [Suspect]
     Indication: ANKYLOSING SPONDYLITIS
     Dates: start: 20130129
  2. HYDROCODONE [Concomitant]
     Indication: PAIN
  3. LOSTARTAN [Concomitant]
     Indication: BLOOD PRESSURE

REACTIONS (2)
  - Weight increased [Not Recovered/Not Resolved]
  - Injection site pain [Recovered/Resolved]
